FAERS Safety Report 8430924-X (Version None)
Quarter: 2012Q2

REPORT INFORMATION
  Report Type: 
  Country: None (occurrence: None)
  Receive Date: 20120323
  Receipt Date: 20110701
  Transmission Date: 20120825
  Serious: Yes (Other)
  Sender: FDA-Public Use
  Company Number: 163-21880-11070357

PATIENT
  Age: 63 Year
  Sex: Female

DRUGS (9)
  1. PREVACID [Concomitant]
  2. ZOFRAN [Concomitant]
  3. ZYRTEC [Concomitant]
  4. ATARAX [Concomitant]
  5. BENADRYL [Concomitant]
  6. DECADRON [Concomitant]
  7. COUMADIN [Concomitant]
  8. REVLIMID [Suspect]
     Indication: MULTIPLE MYELOMA
     Dosage: 25 MG, DAILY DAYS 1-14, PO
     Route: 048
     Dates: start: 20110516, end: 20110628
  9. VELCADE [Concomitant]

REACTIONS (7)
  - RASH GENERALISED [None]
  - DIZZINESS [None]
  - PRURITUS [None]
  - DIARRHOEA [None]
  - DRY MOUTH [None]
  - SWELLING FACE [None]
  - INSOMNIA [None]
